FAERS Safety Report 15213866 (Version 6)
Quarter: 2018Q4

REPORT INFORMATION
  Report Type: Spontaneous
  Country: US (occurrence: US)
  Receive Date: 20180730
  Receipt Date: 20181203
  Transmission Date: 20190204
  Serious: Yes (Other)
  Sender: FDA-Public Use
  Company Number: US-SA-2018SA205966

PATIENT
  Age: 50 Year
  Sex: Male
  Weight: 77.11 kg

DRUGS (2)
  1. ALIROCUMAB [Suspect]
     Active Substance: ALIROCUMAB
     Indication: HYPERLIPIDAEMIA
     Dosage: 75 MG, QOW
     Route: 058
     Dates: start: 20180615
  2. ALIROCUMAB PREFILLED PEN [Suspect]
     Active Substance: ALIROCUMAB
     Indication: HYPERLIPIDAEMIA
     Dosage: UNK, QOW
     Dates: start: 20180615

REACTIONS (7)
  - Deafness [Unknown]
  - Sinus disorder [Unknown]
  - Nasopharyngitis [Unknown]
  - Ear discomfort [Unknown]
  - Inner ear inflammation [Unknown]
  - Paraesthesia [Unknown]
  - Tinnitus [Not Recovered/Not Resolved]

NARRATIVE: CASE EVENT DATE: 2018
